FAERS Safety Report 9159817 (Version 1)
Quarter: 2013Q1

REPORT INFORMATION
  Report Type: Spontaneous
  Country: US (occurrence: US)
  Receive Date: 20130313
  Receipt Date: 20130313
  Transmission Date: 20140127
  Serious: Yes (Other)
  Sender: FDA-Public Use
  Company Number: US-ASTELLAS-2013US002678

PATIENT
  Sex: Female
  Weight: 104 kg

DRUGS (1)
  1. VESICARE [Suspect]
     Indication: POLLAKIURIA
     Dosage: 5 MG, UID/QD
     Route: 048

REACTIONS (3)
  - Visual impairment [Unknown]
  - Oedema mouth [Unknown]
  - Swollen tongue [Unknown]
